FAERS Safety Report 6980232-9 (Version None)
Quarter: 2010Q3

REPORT INFORMATION
  Report Type: 
  Country: None (occurrence: None)
  Receive Date: 20100914
  Receipt Date: 20100909
  Transmission Date: 20110219
  Serious: Yes (Hospitalization)
  Sender: FDA-Public Use
  Company Number: FR-ROCHE-709879

PATIENT
  Age: 64 Year
  Sex: Female

DRUGS (1)
  1. BONIVA [Suspect]
     Indication: PRODUCT USED FOR UNKNOWN INDICATION
     Dosage: START DATE: IN THE END OF 2007
     Route: 065
     Dates: start: 20071201

REACTIONS (4)
  - BLINDNESS UNILATERAL [None]
  - HEADACHE [None]
  - OEDEMA [None]
  - OPTIC NERVE DISORDER [None]
